FAERS Safety Report 12351745 (Version 3)
Quarter: 2016Q2

REPORT INFORMATION
  Report Type: Report from Study
  Country: US (occurrence: US)
  Receive Date: 20160510
  Receipt Date: 20160526
  Transmission Date: 20160815
  Serious: Yes (Hospitalization)
  Sender: FDA-Public Use
  Company Number: US-ACTELION-A-US2016-130120

PATIENT
  Age: 49 Year
  Sex: Female

DRUGS (5)
  1. REVATIO [Concomitant]
     Active Substance: SILDENAFIL CITRATE
  2. MACITENTAN [Suspect]
     Active Substance: MACITENTAN
     Indication: PULMONARY ARTERIAL HYPERTENSION
     Dosage: 10 MG, QD
     Route: 048
     Dates: start: 20150105
  3. TYVASO [Concomitant]
     Active Substance: TREPROSTINIL
  4. DILTIAZEM [Concomitant]
     Active Substance: DILTIAZEM
  5. TREPROSTINIL DIOLAMIN [Concomitant]
     Active Substance: TREPROSTINIL DIOLAMINE

REACTIONS (7)
  - Malaise [Unknown]
  - Cholecystectomy [Unknown]
  - Flatulence [Unknown]
  - Abdominal pain upper [Unknown]
  - Cholecystitis [Unknown]
  - Diarrhoea [Unknown]
  - Gallbladder disorder [Unknown]
